FAERS Safety Report 6949800-4 (Version None)
Quarter: 2010Q3

REPORT INFORMATION
  Report Type: 
  Country: None (occurrence: None)
  Receive Date: 20100828
  Receipt Date: 20100112
  Transmission Date: 20110219
  Serious: No
  Sender: FDA-Public Use
  Company Number: US-ABBOTT-10P-163-0619666-00

PATIENT
  Weight: 98.064 kg

DRUGS (8)
  1. NIASPAN [Suspect]
     Indication: BLOOD CHOLESTEROL INCREASED
  2. NIASPAN [Suspect]
     Dates: start: 20091229
  3. NIASPAN [Suspect]
  4. BENACAR [Concomitant]
     Indication: HYPERTENSION
  5. CARVEDILOL [Concomitant]
     Indication: HYPERTENSION
  6. HUMALOG [Concomitant]
     Indication: DIABETES MELLITUS
     Dosage: BEFORE EACH MEAL
     Route: 058
  7. LEVEMIR [Concomitant]
     Indication: DIABETES MELLITUS
     Dosage: AT BEDTIME
     Route: 058
  8. ASPIRIN [Concomitant]
     Indication: PROPHYLAXIS
     Dates: start: 20091229

REACTIONS (2)
  - PARAESTHESIA [None]
  - URTICARIA [None]
